FAERS Safety Report 11659568 (Version 1)
Quarter: 2015Q4

REPORT INFORMATION
  Report Type: Spontaneous
  Country: GB (occurrence: GB)
  Receive Date: 20151026
  Receipt Date: 20151026
  Transmission Date: 20160304
  Serious: Yes (Other)
  Sender: FDA-Public Use
  Company Number: GB-WATSON-2015-20177

PATIENT
  Age: 64 Year
  Sex: Male
  Weight: 73 kg

DRUGS (1)
  1. SOMINEX [Suspect]
     Active Substance: DIPHENHYDRAMINE HYDROCHLORIDE
     Indication: SLEEP DISORDER
     Dosage: 2 DF, TOTAL, BEFORE BED
     Route: 048

REACTIONS (3)
  - Hyperhidrosis [Recovered/Resolved]
  - Shock [Recovered/Resolved]
  - Anxiety [Recovered/Resolved]
